FAERS Safety Report 13441277 (Version 3)
Quarter: 2017Q2

REPORT INFORMATION
  Report Type: Report from Study
  Country: US (occurrence: US)
  Receive Date: 20170413
  Receipt Date: 20170525
  Transmission Date: 20170830
  Serious: Yes (Other)
  Sender: FDA-Public Use
  Company Number: US-ROCHE-1918692

PATIENT
  Age: 12 Year
  Sex: Male
  Weight: 35 kg

DRUGS (4)
  1. NUTROPIN AQ [Suspect]
     Active Substance: SOMATROPIN
     Route: 058
  2. NUTROPIN AQ [Suspect]
     Active Substance: SOMATROPIN
     Dosage: 0.26 MG/KG/WEEK
     Route: 058
  3. ZOLOFT [Concomitant]
     Active Substance: SERTRALINE HYDROCHLORIDE
  4. NUTROPIN AQ [Suspect]
     Active Substance: SOMATROPIN
     Indication: GROWTH HORMONE DEFICIENCY
     Dosage: 5 MG/ML (NUSPIN 20 MG)
     Route: 058

REACTIONS (7)
  - Dysphagia [Unknown]
  - Anxiety [Unknown]
  - Injection site bruising [Recovered/Resolved]
  - Attention deficit/hyperactivity disorder [Unknown]
  - Osteochondrosis [Recovering/Resolving]
  - Impulsive behaviour [Unknown]
  - Arthralgia [Recovering/Resolving]

NARRATIVE: CASE EVENT DATE: 201606
